FAERS Safety Report 5712648-2 (Version None)
Quarter: 2008Q2

REPORT INFORMATION
  Report Type: 
  Country: None (occurrence: None)
  Receive Date: 20080418
  Receipt Date: 20080407
  Transmission Date: 20081010
  Serious: Yes (Other)
  Sender: FDA-Public Use
  Company Number: 2008031122

PATIENT
  Age: 40 Year
  Sex: Female

DRUGS (1)
  1. FRAGMIN [Suspect]
     Indication: PROPHYLAXIS OF ABORTION
     Dosage: 5000 I.U.
     Route: 015

REACTIONS (4)
  - APPLICATION SITE DISCOMFORT [None]
  - APPLICATION SITE INFECTION [None]
  - DRUG EXPOSURE DURING PREGNANCY [None]
  - WRONG TECHNIQUE IN DRUG USAGE PROCESS [None]
